FAERS Safety Report 21048069 (Version 2)
Quarter: 2022Q3

REPORT INFORMATION
  Report Type: Spontaneous
  Country: US (occurrence: US)
  Receive Date: 20220706
  Receipt Date: 20220817
  Transmission Date: 20221027
  Serious: Yes (Life-Threatening, Hospitalization, Other)
  Sender: FDA-Public Use
  Company Number: US-EXELIXIS-CABO-22053502

PATIENT
  Age: 56 Year
  Sex: Female

DRUGS (8)
  1. NIVOLUMAB [Suspect]
     Active Substance: NIVOLUMAB
     Indication: Clear cell renal cell carcinoma
     Dosage: UNK
     Route: 065
  2. CABOMETYX [Suspect]
     Active Substance: CABOZANTINIB S-MALATE
     Indication: Clear cell renal cell carcinoma
     Dosage: 60 MG, QD
     Route: 048
     Dates: start: 20220531
  3. BATIRAXCEPT [Suspect]
     Active Substance: BATIRAXCEPT
     Indication: Clear cell renal cell carcinoma
     Dosage: 888 MG, Q2WEEKS OF EACH 28-DAY CYCLE
     Route: 042
     Dates: start: 20220531
  4. LISINOPRIL AND HYDROCHLOROTHIAZIDE [Suspect]
     Active Substance: HYDROCHLOROTHIAZIDE\LISINOPRIL
     Indication: Hypertension
     Dosage: 20-12.5 MG, QD
     Route: 048
     Dates: start: 20220601, end: 20220617
  5. VITAMIN D3 [Concomitant]
     Active Substance: CHOLECALCIFEROL
     Indication: Osteopenia
     Dosage: UNK
     Route: 065
  6. CALCIUM CITRATE [Concomitant]
     Active Substance: CALCIUM CITRATE
     Indication: Osteopenia
     Dosage: UNK
     Route: 065
  7. AMLOSTAR [AMLODIPINE] [Concomitant]
     Indication: Hypertension
     Dosage: UNK
     Route: 065
  8. BIFIDOBACTERIUM ANIMALIS LACTIS [Concomitant]
     Active Substance: BIFIDOBACTERIUM ANIMALIS LACTIS
     Indication: Prophylaxis against diarrhoea
     Route: 065

REACTIONS (7)
  - Hyponatraemia [Recovered/Resolved]
  - Hypertension [Unknown]
  - Blood urea increased [Unknown]
  - Blood chloride decreased [Unknown]
  - Haemoglobin increased [Unknown]
  - Urine osmolarity decreased [Unknown]
  - Rash [Unknown]

NARRATIVE: CASE EVENT DATE: 20220617
